FAERS Safety Report 6237052-2 (Version None)
Quarter: 2009Q2

REPORT INFORMATION
  Report Type: 
  Country: None (occurrence: None)
  Receive Date: 20090619
  Receipt Date: 20090609
  Transmission Date: 20091009
  Serious: Yes (Other)
  Sender: FDA-Public Use
  Company Number: CR-WYE-H09727409

PATIENT
  Sex: Female

DRUGS (1)
  1. PANTECTA [Suspect]
     Dosage: 40 MG, FREQUENCY UNKNOWN
     Route: 048

REACTIONS (1)
  - OVARIAN OPERATION [None]
